FAERS Safety Report 19599672 (Version 1)
Quarter: 2021Q3

REPORT INFORMATION
  Report Type: Spontaneous
  Country: FR (occurrence: FR)
  Receive Date: 20210722
  Receipt Date: 20210722
  Transmission Date: 20211014
  Serious: Yes (Hospitalization)
  Sender: FDA-Public Use
  Company Number: FR-ALSI-2021000222

PATIENT
  Age: 59 Year
  Sex: Male
  Weight: 125 kg

DRUGS (10)
  1. ATORVASTATINE (ATORVASTATINE) [Concomitant]
  2. CHLORHYDRATE DE PAROXETINE ANHYDRE (CHLORHYDRATE DE PAROXETINE ANHYDRE [Concomitant]
  3. OXYGEN. [Suspect]
     Active Substance: OXYGEN
     Indication: CHRONIC OBSTRUCTIVE PULMONARY DISEASE
     Route: 055
     Dates: start: 20210628
  4. BISOCE 2,5 MG, COMPRIM? PELLICUL? S?CABLE (AMIDON DE MAIS, BISOPROLOL [Concomitant]
  5. CACIT VITAMINE D3 (ALPHA?TOCOPHEROL, AMIDON DE MAIS, AMIDON DE RIZ, AR [Concomitant]
  6. TERCIAN (ASCORBIQUE (ACIDE), ACETIQUE (ACIDE), ALGINIQUE (ACIDE), AMID [Concomitant]
  7. LANSOPRAZOLE MYLAN 30 MG, G?LULE GASTRO?R?SISTANTE (LANSOPRAZOLE) [Concomitant]
  8. ABILIFY (ACIDE TARTRIQUE, AROME/PARFUM, AMIDON DE MAIS, ACESULFAME POT [Concomitant]
  9. JANUVIA 50 MG, COMPRIM? PELLICUL? (CROSCARMELLOSE SODIQUE, CELLULOSE M [Concomitant]
  10. ACIDE FOLIQUE (ACIDE FOLIQUE) [Concomitant]

REACTIONS (1)
  - Burns second degree [Not Recovered/Not Resolved]

NARRATIVE: CASE EVENT DATE: 20210629
